FAERS Safety Report 7331159-4 (Version None)
Quarter: 2011Q1

REPORT INFORMATION
  Report Type: 
  Country: None (occurrence: None)
  Receive Date: 20110304
  Receipt Date: 20110218
  Transmission Date: 20110831
  Serious: Yes (Hospitalization)
  Sender: FDA-Public Use
  Company Number: DE-RANBAXY-2011RR-42141

PATIENT
  Age: 28 Year
  Sex: Female

DRUGS (1)
  1. IBUPROFEN [Suspect]
     Indication: DRUG WITHDRAWAL HEADACHE
     Dosage: 600 MG, SINGLE
     Route: 048
     Dates: start: 20110115, end: 20110115

REACTIONS (2)
  - HYPERSENSITIVITY [None]
  - HAEMATEMESIS [None]
